FAERS Safety Report 8356532-7 (Version None)
Quarter: 2012Q2

REPORT INFORMATION
  Report Type: 
  Country: None (occurrence: None)
  Receive Date: 20120514
  Receipt Date: 20120504
  Transmission Date: 20120825
  Serious: Yes (Hospitalization)
  Sender: FDA-Public Use
  Company Number: PHHY2012FR039857

PATIENT
  Sex: Female

DRUGS (8)
  1. OLMESARTAN MEDOXOMIL [Concomitant]
     Indication: HYPERTENSION
     Dosage: 1 DF, UNK
     Route: 048
     Dates: end: 20120412
  2. NEBIVOLOL HCL [Concomitant]
     Indication: HYPERTENSION
     Dosage: 1 DF, UNK
     Route: 048
  3. METOPIRONE [Suspect]
     Indication: CUSHING'S SYNDROME
     Dates: start: 20120403, end: 20120411
  4. METOPIRONE [Suspect]
     Dates: end: 20120419
  5. ACTONEL [Concomitant]
     Dosage: 1 DF, UNK
  6. HYDROCORTISONE [Concomitant]
     Route: 048
  7. DURAGESIC-100 [Concomitant]
     Dosage: 1 DF, QW2
     Route: 062
  8. LERCANIDIPINE [Concomitant]
     Indication: HYPERTENSION
     Dosage: 1 DF, UNK
     Route: 048

REACTIONS (15)
  - ADRENAL INSUFFICIENCY [None]
  - TACHYCARDIA [None]
  - GASTRIC ULCER [None]
  - VOMITING [None]
  - HYPERAESTHESIA [None]
  - PAIN [None]
  - ABDOMINAL PAIN UPPER [None]
  - HYPOCHLORAEMIA [None]
  - ABDOMINAL PAIN [None]
  - ASTHENIA [None]
  - HYPONATRAEMIA [None]
  - HYPERKALAEMIA [None]
  - DECREASED APPETITE [None]
  - NAUSEA [None]
  - HYPERTENSION [None]
